FAERS Safety Report 5886729-7 (Version None)
Quarter: 2008Q3

REPORT INFORMATION
  Report Type: 
  Country: None (occurrence: None)
  Receive Date: 20080917
  Receipt Date: 20080911
  Transmission Date: 20090109
  Serious: Yes (Hospitalization)
  Sender: FDA-Public Use
  Company Number: PHHY2008DE21330

PATIENT
  Sex: Female

DRUGS (1)
  1. EUCREAS [Suspect]
     Dosage: UNK
     Dates: start: 20080725, end: 20080816

REACTIONS (3)
  - ANGIOEDEMA [None]
  - LIP SWELLING [None]
  - ORAL DISCOMFORT [None]
